FAERS Safety Report 7343066-1 (Version None)
Quarter: 2011Q1

REPORT INFORMATION
  Report Type: 
  Country: None (occurrence: None)
  Receive Date: 20110301
  Receipt Date: 20110217
  Transmission Date: 20110831
  Serious: Yes (Death, Hospitalization, Other)
  Sender: FDA-Public Use
  Company Number: 2011MA001642

PATIENT
  Age: 87 Year
  Sex: Female

DRUGS (15)
  1. IBUPROFEN [Suspect]
     Dosage: 600 MG;TID
     Dates: start: 20080101, end: 20100919
  2. WARFARIN (WARFARIN) [Suspect]
     Dates: start: 20100923, end: 20100929
  3. DIHYDROCODEINE BITARTRATE INJ [Concomitant]
  4. FENTANYL TRANSDERAL SYSTEM [Concomitant]
  5. FRAGMIN [Suspect]
     Indication: DEEP VEIN THROMBOSIS
     Dosage: 10000 IU;QD;SC
     Route: 058
     Dates: start: 20100807, end: 20100919
  6. MOVIPREP [Concomitant]
  7. ZOPICLONE [Concomitant]
  8. FRAGMIN [Suspect]
     Indication: THROMBOSIS PROPHYLAXIS
     Dosage: 5000 IU;QD
     Dates: start: 20101005
  9. WARFARIN (WARFARIN) [Suspect]
     Dosage: 3 MG
     Dates: start: 20101005, end: 20101007
  10. OMEPRAZOLE [Concomitant]
  11. PARACETAMOL [Concomitant]
  12. LEVOTHYROXINE SODIUM [Concomitant]
  13. FUROSEMIDE [Concomitant]
  14. WARFARIN (WARFARIN) [Suspect]
     Indication: DEEP VEIN THROMBOSIS
     Dates: start: 20100831, end: 20100919
  15. TRIMETHOPRIM [Suspect]

REACTIONS (12)
  - GENERAL PHYSICAL HEALTH DETERIORATION [None]
  - SUBCUTANEOUS HAEMATOMA [None]
  - LOWER RESPIRATORY TRACT INFECTION [None]
  - URINARY TRACT INFECTION [None]
  - RENAL FAILURE CHRONIC [None]
  - INJECTION SITE HAEMORRHAGE [None]
  - DYSPHAGIA [None]
  - ANTICOAGULATION DRUG LEVEL ABOVE THERAPEUTIC [None]
  - INTERNATIONAL NORMALISED RATIO INCREASED [None]
  - DEEP VEIN THROMBOSIS [None]
  - BLOOD PRESSURE DECREASED [None]
  - SOMNOLENCE [None]
